FAERS Safety Report 9650623 (Version 1)
Quarter: 2013Q4

REPORT INFORMATION
  Report Type: Spontaneous
  Country: US (occurrence: US)
  Receive Date: 20131029
  Receipt Date: 20131029
  Transmission Date: 20140711
  Serious: No
  Sender: FDA-Public Use
  Company Number: US-BIOGENIDEC-2013BI098223

PATIENT
  Sex: Female

DRUGS (2)
  1. AVONEX [Suspect]
     Indication: MULTIPLE SCLEROSIS
     Route: 030
     Dates: start: 20071001
  2. AVONEX [Suspect]
     Indication: MULTIPLE SCLEROSIS
     Route: 030
     Dates: start: 20110713, end: 20121201

REACTIONS (9)
  - Cognitive disorder [Not Recovered/Not Resolved]
  - Wound haemorrhage [Unknown]
  - Scratch [Unknown]
  - Hypoaesthesia [Not Recovered/Not Resolved]
  - Sensation of heaviness [Not Recovered/Not Resolved]
  - Depression [Unknown]
  - Urticaria [Unknown]
  - Rash [Unknown]
  - Injection site reaction [Unknown]
